FAERS Safety Report 13992791 (Version 1)
Quarter: 2017Q3

REPORT INFORMATION
  Report Type: Spontaneous
  Country: US (occurrence: US)
  Receive Date: 20170920
  Receipt Date: 20170920
  Transmission Date: 20171128
  Serious: No
  Sender: FDA-Public Use
  Company Number: US-RECKITT BENCKISER HEALTHCARE INT LIMITED-RB-93050-2016

PATIENT
  Age: 72 Year
  Sex: Male

DRUGS (1)
  1. MUCINEX MAXIMUM STRENGTH [Suspect]
     Active Substance: GUAIFENESIN
     Indication: CHRONIC OBSTRUCTIVE PULMONARY DISEASE
     Dosage: TOOK ONCE IN THE MORNING AND ONCE AT NIGHT.
     Route: 065
     Dates: start: 2016

REACTIONS (3)
  - Product use in unapproved indication [Unknown]
  - Incorrect drug administration duration [Unknown]
  - No adverse event [Unknown]
